FAERS Safety Report 8818868 (Version 1)
Quarter: 2012Q4

REPORT INFORMATION
  Report Type: 
  Country: US (occurrence: US)
  Receive Date: 20121002
  Receipt Date: 20121002
  Transmission Date: 20130627
  Serious: No
  Sender: FDA-Public Use
  Company Number: US-009507513-1209USA009792

PATIENT
  Sex: Female

DRUGS (4)
  1. PEG-INTRON [Suspect]
     Indication: HEPATITIS C
     Dosage: UNK
     Dates: start: 20050101, end: 20051201
  2. PEG-INTRON [Suspect]
     Dosage: UNK
     Dates: start: 20070101, end: 20070401
  3. REBETOL [Suspect]
     Indication: HEPATITIS C
     Dosage: UNK
     Dates: start: 20050101, end: 20051201
  4. REBETOL [Suspect]
     Dosage: UNK
     Dates: start: 20070101, end: 20070401

REACTIONS (4)
  - Drug ineffective [Unknown]
  - Anaemia [Unknown]
  - Drug ineffective [Unknown]
  - Anaemia [Unknown]
